FAERS Safety Report 8740005 (Version 2)
Quarter: 2013Q4

REPORT INFORMATION
  Report Type: Spontaneous
  Country: US (occurrence: US)
  Receive Date: 20120823
  Receipt Date: 20131101
  Transmission Date: 20140711
  Serious: No
  Sender: FDA-Public Use
  Company Number: US-009507513-1208USA001240

PATIENT
  Age: 22 Year
  Sex: Female

DRUGS (1)
  1. NUVARING [Suspect]
     Indication: CONTRACEPTION
     Dosage: 0.15/0.012 MG/DAY
     Route: 067
     Dates: start: 201207

REACTIONS (1)
  - Oedema genital [Unknown]
